FAERS Safety Report 4779135-X (Version None)
Quarter: 2005Q3

REPORT INFORMATION
  Report Type: 
  Country: None (occurrence: None)
  Receive Date: 20050914
  Receipt Date: 20050608
  Transmission Date: 20060218
  Serious: Yes (Other)
  Sender: FDA-Public Use
  Company Number: 407354

PATIENT
  Sex: Male
  Weight: 73.9 kg

DRUGS (10)
  1. BONIVA [Suspect]
     Indication: OSTEOPOROSIS
     Dosage: 150 MG 1 PER MONTH ORAL
     Route: 048
     Dates: start: 20050526
  2. OS-CAL D (CALCIUM CARBONATE/CHOLECALCIFEROL) [Concomitant]
  3. DYAZIDE [Concomitant]
  4. IMDUR [Concomitant]
  5. CARDURA [Concomitant]
  6. ZOCOR [Concomitant]
  7. SYNTHROID [Concomitant]
  8. NEXIUM [Concomitant]
  9. ASPIRIN [Concomitant]
  10. SOTALOL HCL [Concomitant]

REACTIONS (1)
  - OEDEMA PERIPHERAL [None]
